FAERS Safety Report 6174671-6 (Version None)
Quarter: 2009Q2

REPORT INFORMATION
  Report Type: 
  Country: None (occurrence: None)
  Receive Date: 20090430
  Receipt Date: 20090427
  Transmission Date: 20091009
  Serious: Yes (Hospitalization)
  Sender: FDA-Public Use
  Company Number: TR-JNJFOC-20090405936

PATIENT
  Age: 12 Year
  Sex: Male
  Weight: 53 kg

DRUGS (2)
  1. ACETAMINOPHEN [Suspect]
     Indication: PYREXIA
     Route: 048
  2. ACETAMINOPHEN [Suspect]
     Indication: ABDOMINAL PAIN
     Route: 048

REACTIONS (1)
  - RENAL FAILURE ACUTE [None]
